FAERS Safety Report 9804526 (Version 2)
Quarter: 2014Q1

REPORT INFORMATION
  Report Type: Spontaneous
  Country: US (occurrence: US)
  Receive Date: 20140108
  Receipt Date: 20140207
  Transmission Date: 20141002
  Serious: Yes (Hospitalization)
  Sender: FDA-Public Use
  Company Number: US-VERTEX PHARMACEUTICALS INC-2014-000083

PATIENT
  Age: 60 Year
  Sex: Male
  Weight: 104.31 kg

DRUGS (11)
  1. INCIVEK [Suspect]
     Indication: HEPATITIS C
     Dosage: 2 DF, TID
     Route: 048
     Dates: start: 20130807, end: 20131007
  2. PEGINTERFERON ALFA [Suspect]
     Indication: HEPATITIS C
     Dosage: 180 ?G, QW
     Dates: start: 20130807, end: 20131127
  3. RIBAVIRIN [Suspect]
     Indication: HEPATITIS C
     Dosage: 3 DF, BID
     Route: 048
     Dates: start: 20130807, end: 20131127
  4. PROCRIT [Concomitant]
     Dosage: UNK
     Dates: end: 20131127
  5. ATARAX [Concomitant]
  6. CELEXA [Concomitant]
  7. COMPAZINE [Concomitant]
  8. VOLTAREN [Concomitant]
  9. LISINOPRIL [Concomitant]
  10. FLOMAX [Concomitant]
  11. VICOPROFEN [Concomitant]

REACTIONS (2)
  - Staphylococcal bacteraemia [Recovering/Resolving]
  - Toxic epidermal necrolysis [Recovered/Resolved]
